FAERS Safety Report 5850470-7 (Version None)
Quarter: 2008Q3

REPORT INFORMATION
  Report Type: 
  Country: None (occurrence: None)
  Receive Date: 20080818
  Receipt Date: 20080811
  Transmission Date: 20090109
  Serious: Yes (Other)
  Sender: FDA-Public Use
  Company Number: SPV1-2008-01726

PATIENT
  Sex: Male

DRUGS (2)
  1. ADDERALL XR 30 [Suspect]
     Dosage: 20 MG,
  2. ADDERALL 10 [Suspect]
     Dosage: 5 MG, AS REQ'D,

REACTIONS (1)
  - VENTRICULAR TACHYCARDIA [None]
